FAERS Safety Report 6317535-7 (Version None)
Quarter: 2009Q3

REPORT INFORMATION
  Report Type: 
  Country: None (occurrence: None)
  Receive Date: 20090821
  Receipt Date: 20090810
  Transmission Date: 20100115
  Serious: Yes (Other)
  Sender: FDA-Public Use
  Company Number: GB-ROCHE-650013

PATIENT
  Age: 3 Year
  Sex: Male

DRUGS (2)
  1. TAMIFLU [Suspect]
     Indication: DRUG USE FOR UNKNOWN INDICATION
     Route: 065
     Dates: start: 20090729, end: 20090801
  2. NATURE PLUS [Concomitant]

REACTIONS (4)
  - ANGER [None]
  - EMOTIONAL DISORDER [None]
  - HISTRIONIC PERSONALITY DISORDER [None]
  - PERSONALITY CHANGE [None]
